FAERS Safety Report 19111649 (Version 1)
Quarter: 2021Q2

REPORT INFORMATION
  Report Type: Spontaneous
  Country: CN (occurrence: CN)
  Receive Date: 20210408
  Receipt Date: 20210408
  Transmission Date: 20210717
  Serious: Yes (Other)
  Sender: FDA-Public Use
  Company Number: CN-PFIZER INC-2021338622

PATIENT
  Age: 55 Year
  Sex: Male
  Weight: 50 kg

DRUGS (2)
  1. METHYLPREDNISOLONE SODIUM SUCCINATE. [Suspect]
     Active Substance: METHYLPREDNISOLONE SODIUM SUCCINATE
     Indication: PROPHYLAXIS
     Dosage: 40 MG, 2X/DAY
     Route: 041
     Dates: start: 20210121, end: 20210128
  2. SODIUM CHLORIDE 0.9% [Suspect]
     Active Substance: SODIUM CHLORIDE
     Indication: VEHICLE SOLUTION USE
     Dosage: 100 ML, 2X/DAY
     Route: 041
     Dates: start: 20210121, end: 20210128

REACTIONS (1)
  - Folliculitis [Unknown]

NARRATIVE: CASE EVENT DATE: 20210127
